FAERS Safety Report 17527008 (Version 1)
Quarter: 2020Q1

REPORT INFORMATION
  Report Type: Report from Study
  Country: US (occurrence: US)
  Receive Date: 20200311
  Receipt Date: 20200311
  Transmission Date: 20200409
  Serious: Yes (Hospitalization)
  Sender: FDA-Public Use
  Company Number: US-MYLANLABS-2020M1027698

PATIENT
  Age: 55 Year
  Sex: Female

DRUGS (3)
  1. CLOZAPINE. [Suspect]
     Active Substance: CLOZAPINE
     Indication: PARKINSON^S DISEASE PSYCHOSIS
     Route: 048
  2. HALOPERIDOL. [Suspect]
     Active Substance: HALOPERIDOL
     Indication: PARKINSON^S DISEASE PSYCHOSIS
     Route: 042
  3. LORAZEPAM. [Suspect]
     Active Substance: LORAZEPAM
     Indication: NEUROLEPTIC MALIGNANT SYNDROME
     Route: 065

REACTIONS (4)
  - Contraindicated product administered [Unknown]
  - Off label use [Unknown]
  - Drug ineffective [Unknown]
  - Neuroleptic malignant syndrome [Recovering/Resolving]
